FAERS Safety Report 7587723-0 (Version None)
Quarter: 2011Q3

REPORT INFORMATION
  Report Type: 
  Country: None (occurrence: None)
  Receive Date: 20110704
  Receipt Date: 20110621
  Transmission Date: 20111222
  Serious: Yes (Hospitalization, Other)
  Sender: FDA-Public Use
  Company Number: US-ELI_LILLY_AND_COMPANY-US201106008118

PATIENT
  Sex: Female

DRUGS (1)
  1. FORTEO [Suspect]
     Indication: BONE DENSITY INCREASED
     Dosage: 20 UG, QD
     Route: 058
     Dates: start: 20100301

REACTIONS (3)
  - BRAIN COMPRESSION [None]
  - PARAPARESIS [None]
  - FALL [None]
